FAERS Safety Report 18734924 (Version 3)
Quarter: 2021Q1

REPORT INFORMATION
  Report Type: Report from Study
  Country: CA (occurrence: CA)
  Receive Date: 20210113
  Receipt Date: 20210205
  Transmission Date: 20210419
  Serious: Yes (Other)
  Sender: FDA-Public Use
  Company Number: CA-SA-2021SA006690

PATIENT
  Age: 36 Year
  Sex: Male

DRUGS (14)
  1. DOXYCYCLINE HYCLATE. [Concomitant]
     Active Substance: DOXYCYCLINE HYCLATE
     Dosage: 100 MG, Q12H (100MG HALF TABLET)
     Route: 048
  2. HEMP [Concomitant]
     Active Substance: HEMP
     Dosage: 1 DF, QD (OIL 1 TBSP DAILY)
     Route: 065
  3. IBUPROF [Concomitant]
     Dosage: 30 MG, QD
     Route: 065
  4. LANSOPRAZOLE. [Concomitant]
     Active Substance: LANSOPRAZOLE
     Dosage: 30 MG, QD
     Route: 048
  5. MINOCYCLINE [Concomitant]
     Active Substance: MINOCYCLINE HYDROCHLORIDE
     Dosage: 1 DF, QD
     Route: 065
  6. TRAMADOL ACET [Concomitant]
     Dosage: 37.5MG/325MG 1 OR 2 TABS TID PRN (AS NEEDED)
     Route: 048
  7. ACETAMINOPHEN;CODEINE [Concomitant]
     Active Substance: ACETAMINOPHEN\CODEINE PHOSPHATE
     Dosage: 1 OR 2 TABLET HS
     Route: 048
  8. BETADERM [Concomitant]
     Active Substance: BETAMETHASONE VALERATE
     Dosage: 0.1 %, Q12H
     Route: 061
  9. VITAMIN D NOS [Concomitant]
     Active Substance: VITAMIN D NOS
     Dosage: UNK UNK, QD
     Route: 065
  10. ACETAMINOPHEN;CAFFEINE [Concomitant]
     Active Substance: ACETAMINOPHEN\CAFFEINE
     Dosage: UNK
     Route: 048
  11. VANDETANIB. [Suspect]
     Active Substance: VANDETANIB
     Indication: THYROID CANCER
     Dosage: 300MG
     Route: 048
     Dates: start: 20200328, end: 20201220
  12. APO?HYDROXYZINE [Concomitant]
     Active Substance: HYDROXYZINE HYDROCHLORIDE
     Indication: PRURITUS
     Dosage: 1 DF, Q8H (25 MG 1 CAP TID PRN (AS NEEDED))
     Route: 048
  13. ACETAMINOPHEN;CAFFEINE [Concomitant]
     Active Substance: ACETAMINOPHEN\CAFFEINE
     Dosage: 1 OR 2 TABS PO HS PRN
     Route: 048
  14. RATIO?LENOLTEC NO 3 [Concomitant]
     Active Substance: ACETAMINOPHEN\CAFFEINE\CODEINE PHOSPHATE
     Dosage: 30 MG
     Route: 065

REACTIONS (2)
  - Drug-induced liver injury [Unknown]
  - Therapy cessation [Unknown]

NARRATIVE: CASE EVENT DATE: 20201220
